FAERS Safety Report 9268492 (Version 2)
Quarter: 2013Q4

REPORT INFORMATION
  Report Type: Spontaneous
  Country: US (occurrence: US)
  Receive Date: 20130502
  Receipt Date: 20131004
  Transmission Date: 20140711
  Serious: Yes (Hospitalization)
  Sender: FDA-Public Use
  Company Number: US-B.I. PHARMACEUTICALS,INC./RIDGEFIELD-2013-BI-12172BP

PATIENT
  Age: 87 Year
  Sex: Male
  Weight: 81.65 kg

DRUGS (13)
  1. PRADAXA [Suspect]
     Indication: ANTICOAGULANT THERAPY
     Dosage: 300 MG
     Dates: start: 20110903, end: 20111222
  2. PRADAXA [Suspect]
     Indication: CARDIOVASCULAR DISORDER
  3. PRADAXA [Suspect]
     Indication: ATRIAL FIBRILLATION
  4. ASPIRIN [Suspect]
     Indication: CARDIOVASCULAR DISORDER
     Dosage: 81 MG
     Dates: end: 20111222
  5. CQ10 [Concomitant]
     Dosage: 400 MG
  6. SYNTHROID [Concomitant]
     Dosage: 50 MCG
  7. TOPROL XL [Concomitant]
  8. MULTIVITAMIN [Concomitant]
  9. OMEGA III FATTY ACIDS [Concomitant]
  10. REQUIP [Concomitant]
     Dosage: 1 MG
  11. ZOCOR [Concomitant]
  12. HYTRIN [Concomitant]
     Indication: BENIGN PROSTATIC HYPERPLASIA
     Dosage: 5 MG
     Dates: start: 2000
  13. SIMVASTATIN [Concomitant]
     Dosage: 40 MCG
     Route: 048
     Dates: start: 2011, end: 2012

REACTIONS (2)
  - Upper gastrointestinal haemorrhage [Unknown]
  - Anaemia [Unknown]
